FAERS Safety Report 6965926-3 (Version None)
Quarter: 2010Q3

REPORT INFORMATION
  Report Type: 
  Country: None (occurrence: None)
  Receive Date: 20100903
  Receipt Date: 20100825
  Transmission Date: 20110219
  Serious: Yes (Hospitalization)
  Sender: FDA-Public Use
  Company Number: TN-PERRIGO-10TN012512

PATIENT
  Age: 7 Month
  Sex: Male

DRUGS (3)
  1. CHILDREN'S IBUPROFEN [Suspect]
     Indication: PYREXIA
     Dosage: 7.5 MG/KG, SINGLE
     Route: 048
  2. CHILDREN'S IBUPROFEN [Suspect]
     Indication: COUGH
  3. CHILDREN'S IBUPROFEN [Suspect]
     Indication: RHINORRHOEA

REACTIONS (2)
  - CYANOSIS [None]
  - METHAEMOGLOBINAEMIA [None]
